FAERS Safety Report 10736344 (Version 2)
Quarter: 2015Q2

REPORT INFORMATION
  Report Type: Spontaneous
  Country: US (occurrence: None)
  Receive Date: 20150121
  Receipt Date: 20150428
  Transmission Date: 20150821
  Serious: Yes (Other)
  Sender: FDA-Public Use
  Company Number: 2014VER00373

PATIENT
  Age: 25 Year
  Sex: Female
  Weight: 59 kg

DRUGS (3)
  1. MYORISAN [Suspect]
     Active Substance: ISOTRETINOIN
     Indication: ACNE
     Dosage: 40 MG, 1X/DAY, ORAL
     Route: 048
     Dates: start: 20141020, end: 20141120
  2. LOESTRIN NOS [Concomitant]
     Active Substance: ETHINYL ESTRADIOL\NORETHINDRONE ACETATE
  3. UNSPECIFIED MEDICATIONS TO REGULATE MENSTRUAL CYCLE [Concomitant]

REACTIONS (9)
  - Abdominal pain [None]
  - Dry eye [None]
  - Metrorrhagia [None]
  - Mood altered [None]
  - Nausea [None]
  - Vision blurred [None]
  - Headache [None]
  - Eye irritation [None]
  - Dry skin [None]

NARRATIVE: CASE EVENT DATE: 2014
